FAERS Safety Report 17433297 (Version 2)
Quarter: 2025Q2

REPORT INFORMATION
  Report Type: Spontaneous
  Country: US (occurrence: GB)
  Receive Date: 20200219
  Receipt Date: 20250621
  Transmission Date: 20250716
  Serious: Yes (Death, Life-Threatening, Hospitalization, Other)
  Sender: AUROBINDO
  Company Number: GB-MERCK-0712USA09234

PATIENT
  Age: 66 Year
  Sex: Male
  Weight: 86.2 kg

DRUGS (8)
  1. SIMVASTATIN [Interacting]
     Active Substance: SIMVASTATIN
     Indication: Hyperlipidaemia
     Dosage: 30 MILLIGRAM, ONCE A DAY
     Route: 048
  2. SIMVASTATIN [Interacting]
     Active Substance: SIMVASTATIN
     Indication: Myocardial ischaemia
     Dosage: 60 MILLIGRAM, ONCE A DAY
     Route: 048
  3. CYCLOSPORINE [Interacting]
     Active Substance: CYCLOSPORINE
     Indication: Postoperative care
     Dosage: 150 MILLIGRAM, ONCE A DAY
     Route: 065
  4. MYCOPHENOLATE SODIUM [Interacting]
     Active Substance: MYCOPHENOLATE SODIUM
     Indication: Gout
     Dosage: 500 MILLIGRAM, ONCE A DAY
     Route: 065
  5. MYCOPHENOLATE SODIUM [Interacting]
     Active Substance: MYCOPHENOLATE SODIUM
     Indication: Postoperative care
     Route: 065
  6. COLCHICINE [Interacting]
     Active Substance: COLCHICINE
     Indication: Gout
     Dosage: 1.2 MILLIGRAM, ONCE A DAY
     Route: 065
  7. METICORTEN [Interacting]
     Active Substance: PREDNISONE
     Indication: Postoperative care
     Dosage: 7.5 MILLIGRAM, ONCE A DAY
     Route: 048
  8. INSULIN NOS [Concomitant]
     Active Substance: INSULIN NOS
     Indication: Diabetes mellitus
     Route: 065

REACTIONS (4)
  - Pneumonia [Fatal]
  - Rhabdomyolysis [Fatal]
  - Myopathy toxic [Fatal]
  - Drug interaction [Fatal]
